FAERS Safety Report 18578216 (Version 3)
Quarter: 2021Q1

REPORT INFORMATION
  Report Type: Spontaneous
  Country: GB (occurrence: GB)
  Receive Date: 20201204
  Receipt Date: 20210206
  Transmission Date: 20210419
  Serious: Yes (Other)
  Sender: FDA-Public Use
  Company Number: GB-AUROBINDO-AUR-APL-2020-059001

PATIENT
  Age: 59 Year
  Sex: Female

DRUGS (4)
  1. CEFALEXIN 500 MG [Suspect]
     Active Substance: CEPHALEXIN
     Indication: PRODUCT USED FOR UNKNOWN INDICATION
     Dosage: UNK
     Route: 048
  2. CEFALEXIN CAPSULES [Suspect]
     Active Substance: CEPHALEXIN
     Indication: URINARY TRACT INFECTION
     Dosage: UNK
     Route: 048
  3. CEFALEXIN CAPSULES [Suspect]
     Active Substance: CEPHALEXIN
     Route: 048
  4. KEFLEX [Suspect]
     Active Substance: CEPHALEXIN
     Indication: URINARY TRACT INFECTION
     Dosage: 250MG X2 X 4 TIMES DAILY
     Route: 048

REACTIONS (8)
  - Eye pain [Unknown]
  - Reaction to excipient [Unknown]
  - Neuropathy peripheral [Recovered/Resolved]
  - Swollen tongue [Recovered/Resolved]
  - Paraesthesia oral [Unknown]
  - Neuralgia [Unknown]
  - Lip swelling [Recovered/Resolved]
  - Pruritus [Recovered/Resolved]
